FAERS Safety Report 4503363-1 (Version None)
Quarter: 2004Q4

REPORT INFORMATION
  Report Type: 
  Country: None (occurrence: None)
  Receive Date: 20041112
  Receipt Date: 20041101
  Transmission Date: 20050328
  Serious: Yes (Hospitalization)
  Sender: FDA-Public Use
  Company Number: 2004242965JP

PATIENT
  Age: 54 Year
  Sex: Female

DRUGS (3)
  1. AROMASIN [Suspect]
     Indication: BREAST CANCER FEMALE
     Dosage: 25 MG, DAILY, ORAL
     Route: 048
     Dates: start: 20040810, end: 20041014
  2. AREDIA [Suspect]
     Indication: METASTASES TO BONE
     Dosage: 90 MG, DAILY, IV
     Route: 042
     Dates: start: 20040517, end: 20041004
  3. LOXONIN (LOXOPROFEN SODIUM) [Suspect]
     Indication: BONE PAIN
     Dosage: ORAKL
     Route: 048
     Dates: start: 20040921, end: 20041014

REACTIONS (2)
  - BONE PAIN [None]
  - HEPATITIS FULMINANT [None]
